FAERS Safety Report 19955942 (Version 1)
Quarter: 2021Q4

REPORT INFORMATION
  Report Type: Report from Study
  Country: ES (occurrence: ES)
  Receive Date: 20211014
  Receipt Date: 20211014
  Transmission Date: 20220303
  Serious: Yes (Death)
  Sender: FDA-Public Use
  Company Number: ES-PFIZER INC-202101323780

PATIENT

DRUGS (2)
  1. OXALIPLATIN [Suspect]
     Active Substance: OXALIPLATIN
     Indication: Metastases to peritoneum
     Dosage: UNK
  2. MITOMYCIN C [Concomitant]
     Active Substance: MITOMYCIN
     Indication: Metastases to peritoneum
     Dosage: UNK

REACTIONS (1)
  - Death [Fatal]
